FAERS Safety Report 8512662-8 (Version None)
Quarter: 2012Q3

REPORT INFORMATION
  Report Type: 
  Country: None (occurrence: None)
  Receive Date: 20120716
  Receipt Date: 20120709
  Transmission Date: 20120928
  Serious: Yes (Hospitalization)
  Sender: FDA-Public Use
  Company Number: JP-PFIZER INC-2012088261

PATIENT
  Age: 38 Year
  Sex: Female
  Weight: 72 kg

DRUGS (6)
  1. MUCODYNE [Concomitant]
     Indication: PRODUCTIVE COUGH
     Dosage: 1500 MG, 1X/DAY
     Route: 048
     Dates: start: 20120228, end: 20120314
  2. ASTOMIN [Concomitant]
     Indication: ANTITUSSIVE THERAPY
     Dosage: 30 MG, 1X/DAY
     Route: 048
     Dates: start: 20120228, end: 20120314
  3. LANTUS [Concomitant]
     Indication: DIABETES MELLITUS
     Dosage: 16 IU, 1X/DAY
     Route: 058
  4. HUMALOG [Concomitant]
     Indication: DIABETES MELLITUS
     Dosage: 27 IU, 1X/DAY
     Route: 058
  5. ZOSYN [Suspect]
     Indication: PYELONEPHRITIS
     Dosage: UNK
     Route: 041
     Dates: start: 20120228, end: 20120304
  6. METFORMIN HCL [Concomitant]
     Indication: DIABETES MELLITUS
     Dosage: 250 MG, 1X/DAY
     Route: 048

REACTIONS (1)
  - LUNG DISORDER [None]
